FAERS Safety Report 17624450 (Version 1)
Quarter: 2020Q2

REPORT INFORMATION
  Report Type: Other
  Country: GB (occurrence: GB)
  Receive Date: 20200403
  Receipt Date: 20200403
  Transmission Date: 20200713
  Serious: Yes (Death, Life-Threatening, Hospitalization)
  Sender: FDA-Public Use
  Company Number: GB-NOSTRUM LABORATORIES, INC.-2082299

PATIENT
  Age: 64 Year
  Sex: Male

DRUGS (1)
  1. CLARITHROMYCIN EXTENDED RELEASE [Suspect]
     Active Substance: CLARITHROMYCIN
     Indication: ENDOCARDITIS
     Route: 065

REACTIONS (2)
  - Infection [Fatal]
  - Drug reaction with eosinophilia and systemic symptoms [Recovered/Resolved]
